FAERS Safety Report 7352171-5 (Version None)
Quarter: 2011Q1

REPORT INFORMATION
  Report Type: 
  Country: None (occurrence: None)
  Receive Date: 20110315
  Receipt Date: 20100907
  Transmission Date: 20110831
  Serious: Yes (Hospitalization, Other)
  Sender: FDA-Public Use
  Company Number: US-BAYER-201014180NA

PATIENT
  Sex: Female
  Weight: 59 kg

DRUGS (5)
  1. YAZ [Suspect]
     Indication: CHOLELITHIASIS
     Route: 048
     Dates: start: 20080401, end: 20081001
  2. OCELLA [Suspect]
     Indication: PRODUCT USED FOR UNKNOWN INDICATION
     Route: 048
     Dates: start: 20080401, end: 20081001
  3. ALEVE [Concomitant]
  4. YASMIN [Suspect]
     Indication: CHOLELITHIASIS
     Route: 048
     Dates: start: 20080401, end: 20081001
  5. MIRENA [Concomitant]
     Dates: start: 20010101

REACTIONS (10)
  - CHOLELITHIASIS [None]
  - ANXIETY [None]
  - CHOLECYSTITIS CHRONIC [None]
  - GASTROINTESTINAL DISORDER [None]
  - NAUSEA [None]
  - ABDOMINAL DISCOMFORT [None]
  - BACK PAIN [None]
  - ABDOMINAL PAIN [None]
  - CHEST PAIN [None]
  - DIARRHOEA [None]
